FAERS Safety Report 17168300 (Version 1)
Quarter: 2019Q4

REPORT INFORMATION
  Report Type: Report from Study
  Country: DE (occurrence: DE)
  Receive Date: 20191218
  Receipt Date: 20191218
  Transmission Date: 20200122
  Serious: Yes (Hospitalization)
  Sender: FDA-Public Use
  Company Number: DE-ROCHE-2464851

PATIENT
  Sex: Female

DRUGS (2)
  1. NUTROPIN [Suspect]
     Active Substance: SOMATROPIN
     Indication: OFF LABEL USE
  2. NUTROPIN [Suspect]
     Active Substance: SOMATROPIN
     Indication: PRADER-WILLI SYNDROME
     Route: 058
     Dates: start: 20140905

REACTIONS (5)
  - Respiratory arrest [Recovered/Resolved]
  - Snoring [Recovered/Resolved]
  - Adenoidal hypertrophy [Unknown]
  - Off label use [Unknown]
  - Sleep apnoea syndrome [Recovered/Resolved]
